FAERS Safety Report 15765686 (Version 1)
Quarter: 2018Q4

REPORT INFORMATION
  Report Type: Spontaneous
  Country: US (occurrence: US)
  Receive Date: 20181227
  Receipt Date: 20181227
  Transmission Date: 20190205
  Serious: No
  Sender: FDA-Public Use
  Company Number: None

PATIENT

DRUGS (1)
  1. BUPIVACAINE SPINAL [Suspect]
     Active Substance: BUPIVACAINE

REACTIONS (1)
  - Inadequate analgesia [None]

NARRATIVE: CASE EVENT DATE: 20181218
